FAERS Safety Report 8987209 (Version 1)
Quarter: 2012Q4

REPORT INFORMATION
  Report Type: Report from Study
  Country: GB (occurrence: US)
  Receive Date: 20121227
  Receipt Date: 20121227
  Transmission Date: 20130627
  Serious: Yes (Hospitalization)
  Sender: FDA-Public Use
  Company Number: US-BRISTOL-MYERS SQUIBB COMPANY-17227489

PATIENT
  Age: 76 Year
  Sex: Female
  Weight: 70.3 kg

DRUGS (16)
  1. CETUXIMAB [Suspect]
     Indication: NON-SMALL CELL LUNG CANCER
     Dosage: 500mg/m2
     Route: 042
  2. TONIC WATER [Concomitant]
     Indication: MUSCLE SPASMS
     Route: 048
     Dates: start: 2007
  3. SYNTHROID [Concomitant]
     Indication: HYPOTHYROIDISM
     Route: 048
     Dates: start: 2008
  4. METOPROLOL [Concomitant]
     Indication: HYPERTENSION
     Route: 048
     Dates: start: 2010
  5. DIOVAN [Concomitant]
     Indication: HYPERTENSION
     Route: 048
     Dates: start: 2010
  6. PANTOPRAZOLE [Concomitant]
     Indication: GASTROOESOPHAGEAL REFLUX DISEASE
     Route: 048
     Dates: start: 2008
  7. PEPCID [Concomitant]
     Indication: GASTROOESOPHAGEAL REFLUX DISEASE
     Dosage: 1 Df-2 tabs, Q supper
     Route: 048
     Dates: start: 2009
  8. SINGULAIR [Concomitant]
     Indication: ASTHMA
     Route: 048
     Dates: start: 2010
  9. SYMBICORT [Concomitant]
     Indication: ASTHMA
     Dosage: 1 DF-160/45microgram.
     Route: 055
     Dates: start: 2010
  10. VENTOLIN INHALER [Concomitant]
     Indication: ASTHMA
     Dosage: 1 Df-2 puff
     Route: 055
     Dates: start: 201106
  11. CYMBALTA [Concomitant]
     Indication: FIBROMYALGIA
     Route: 048
     Dates: start: 2007
  12. LORAZEPAM [Concomitant]
     Indication: ANXIETY
     Dosage: Every night
     Route: 048
     Dates: start: 2009
  13. IMMODIUM [Concomitant]
     Indication: DIARRHOEA
     Dosage: 2 tabs, PRN
     Route: 048
     Dates: start: 2009
  14. POTASSIUM [Concomitant]
     Route: 048
     Dates: start: 20111221
  15. PROBIOTICA [Concomitant]
     Indication: GASTROINTESTINAL INFECTION
     Dosage: 1 Df-1 capsule
     Route: 048
     Dates: start: 20111223
  16. LORATADINE [Concomitant]
     Route: 048
     Dates: start: 20120118

REACTIONS (2)
  - Syncope [Recovered/Resolved]
  - Hypotension [Recovered/Resolved]
